FAERS Safety Report 10308670 (Version 1)
Quarter: 2014Q3

REPORT INFORMATION
  Report Type: Spontaneous
  Country: FR (occurrence: FR)
  Receive Date: 20140716
  Receipt Date: 20140716
  Transmission Date: 20150326
  Serious: Yes (Life-Threatening, Hospitalization)
  Sender: FDA-Public Use
  Company Number: FR-BRISTOL-MYERS SQUIBB COMPANY-21184536

PATIENT
  Age: 86 Year
  Sex: Male

DRUGS (6)
  1. COUMADINE [Suspect]
     Active Substance: WARFARIN SODIUM
     Dosage: 04JUN2014
     Route: 048
  2. PRAVASTATIN SODIUM. [Concomitant]
     Active Substance: PRAVASTATIN SODIUM
     Indication: DYSLIPIDAEMIA
  3. TRAVATAN [Concomitant]
     Active Substance: TRAVOPROST
     Indication: GLAUCOMA
  4. OMEPRAZOLE. [Suspect]
     Active Substance: OMEPRAZOLE
  5. LERCANIDIPINE [Concomitant]
     Active Substance: LERCANIDIPINE
     Indication: HYPERTENSION
  6. AMIODARONE [Suspect]
     Active Substance: AMIODARONE

REACTIONS (3)
  - Subdural haematoma [Recovering/Resolving]
  - Fall [Recovering/Resolving]
  - Craniocerebral injury [Recovering/Resolving]

NARRATIVE: CASE EVENT DATE: 201405
